FAERS Safety Report 16524712 (Version 2)
Quarter: 2020Q2

REPORT INFORMATION
  Report Type: Report from Study
  Country: None (occurrence: DE)
  Receive Date: 20190703
  Receipt Date: 20200521
  Transmission Date: 20200713
  Serious: Yes (Hospitalization)
  Sender: FDA-Public Use
  Company Number: DE-ABBVIE-19P-062-2837109-00

PATIENT
  Age: 34 Year
  Sex: Female

DRUGS (21)
  1. AZATHIOPRINE. [Suspect]
     Active Substance: AZATHIOPRINE
     Indication: COLITIS ULCERATIVE
     Route: 048
     Dates: start: 20130114, end: 20130326
  2. AZATHIOPRINE. [Suspect]
     Active Substance: AZATHIOPRINE
     Route: 048
     Dates: start: 20130327, end: 20130429
  3. SALOFALK GRANULES [Concomitant]
     Indication: COLITIS ULCERATIVE
     Route: 048
     Dates: start: 20131012, end: 20171025
  4. LANTUS [Concomitant]
     Active Substance: INSULIN GLARGINE
     Indication: TYPE 1 DIABETES MELLITUS
     Route: 058
  5. AZATHIOPRINE. [Suspect]
     Active Substance: AZATHIOPRINE
     Route: 048
     Dates: start: 20131010, end: 20150409
  6. SALOFALK SUPP [Concomitant]
     Route: 054
     Dates: start: 20180208, end: 201803
  7. AZATHIOPRINE. [Suspect]
     Active Substance: AZATHIOPRINE
     Route: 048
     Dates: start: 20130527, end: 20131009
  8. SALOFALK GRANULES [Concomitant]
     Route: 048
     Dates: start: 20171208
  9. SALOFALK SUPP [Concomitant]
     Indication: COLITIS ULCERATIVE
     Route: 054
     Dates: start: 20150330, end: 201505
  10. HUMALOG [Concomitant]
     Active Substance: INSULIN LISPRO
     Indication: TYPE 1 DIABETES MELLITUS
     Route: 058
  11. AZATHIOPRINE. [Suspect]
     Active Substance: AZATHIOPRINE
     Route: 048
     Dates: start: 20130430, end: 20130526
  12. XELJANZ [Concomitant]
     Active Substance: TOFACITINIB CITRATE
     Indication: COLITIS ULCERATIVE
     Route: 048
     Dates: start: 20180303, end: 20180408
  13. ATROVASTATIN [Concomitant]
     Active Substance: ATORVASTATIN CALCIUM
     Indication: HYPERCHOLESTEROLAEMIA
     Route: 048
     Dates: start: 20190215, end: 20190628
  14. SIMVASTIN [Concomitant]
     Active Substance: SIMVASTATIN
     Indication: HYPERCHOLESTEROLAEMIA
     Route: 048
     Dates: start: 20181108, end: 20181220
  15. SALOFALK SUPP [Concomitant]
     Route: 054
     Dates: start: 20151210, end: 201603
  16. XELJANZ [Concomitant]
     Active Substance: TOFACITINIB CITRATE
     Route: 048
     Dates: start: 20180409, end: 20181025
  17. SIMVASTIN [Concomitant]
     Active Substance: SIMVASTATIN
     Route: 048
     Dates: start: 20181221, end: 20190214
  18. HUMIRA [Suspect]
     Active Substance: ADALIMUMAB
     Indication: COLITIS ULCERATIVE
     Route: 058
     Dates: start: 201212, end: 201212
  19. AZATHIOPRINE. [Suspect]
     Active Substance: AZATHIOPRINE
     Route: 048
     Dates: start: 20150410, end: 20160709
  20. SALOFALK SUPP [Concomitant]
     Route: 054
     Dates: start: 20181108
  21. XELJANZ [Concomitant]
     Active Substance: TOFACITINIB CITRATE
     Route: 048
     Dates: start: 20181025, end: 20190806

REACTIONS (1)
  - Contusion [Recovered/Resolved]

NARRATIVE: CASE EVENT DATE: 20190311
